FAERS Safety Report 25124660 (Version 1)
Quarter: 2025Q1

REPORT INFORMATION
  Report Type: Spontaneous
  Country: FR (occurrence: FR)
  Receive Date: 20250326
  Receipt Date: 20250326
  Transmission Date: 20250409
  Serious: Yes (Other)
  Sender: BAYER HEALTHCARE PHARMACEUTICALS INC.
  Company Number: FR-BAYER-2025A040448

PATIENT
  Sex: Male

DRUGS (3)
  1. NUBEQA [Suspect]
     Active Substance: DAROLUTAMIDE
  2. NUBEQA [Suspect]
     Active Substance: DAROLUTAMIDE
  3. NUBEQA [Suspect]
     Active Substance: DAROLUTAMIDE
     Dosage: 1 DF, QD

REACTIONS (2)
  - Hallucination [Recovered/Resolved]
  - Psychomotor retardation [Recovered/Resolved]
